FAERS Safety Report 12068639 (Version 1)
Quarter: 2016Q1

REPORT INFORMATION
  Report Type: Report from Study
  Country: US (occurrence: US)
  Receive Date: 20160211
  Receipt Date: 20160211
  Transmission Date: 20160526
  Serious: Yes (Other)
  Sender: FDA-Public Use
  Company Number: US-AMGEN-USASL2016015549

PATIENT
  Sex: Male

DRUGS (2)
  1. DECONGESTANT                       /00070002/ [Suspect]
     Active Substance: UNSPECIFIED INGREDIENT
     Indication: NASOPHARYNGITIS
     Dosage: UNK
     Route: 065
  2. ENBREL [Suspect]
     Active Substance: ETANERCEPT
     Indication: PRODUCT USED FOR UNKNOWN INDICATION
     Dosage: UNK
     Route: 065

REACTIONS (5)
  - Fatigue [Not Recovered/Not Resolved]
  - Atrial fibrillation [Unknown]
  - Cough [Not Recovered/Not Resolved]
  - Myalgia [Not Recovered/Not Resolved]
  - Nasopharyngitis [Recovered/Resolved]
